FAERS Safety Report 9007408 (Version 1)
Quarter: 2013Q1

REPORT INFORMATION
  Report Type: Spontaneous
  Country: US (occurrence: US)
  Receive Date: 20130110
  Receipt Date: 20130110
  Transmission Date: 20140127
  Serious: No
  Sender: FDA-Public Use
  Company Number: US-PFIZER INC-2013010880

PATIENT
  Sex: Female

DRUGS (1)
  1. PREMARIN VAGINAL CREAM [Suspect]
     Dosage: UNK
     Route: 067
     Dates: start: 20130107

REACTIONS (1)
  - Constipation [Unknown]
